FAERS Safety Report 8131577-0 (Version None)
Quarter: 2012Q1

REPORT INFORMATION
  Report Type: 
  Country: None (occurrence: None)
  Receive Date: 20120213
  Receipt Date: 20120208
  Transmission Date: 20120608
  Serious: No
  Sender: FDA-Public Use
  Company Number: US-PFIZER INC-2012026788

PATIENT
  Sex: Female
  Weight: 88 kg

DRUGS (1)
  1. IBUPROFEN (ADVIL) [Suspect]
     Indication: MYALGIA
     Dosage: 200 MG, 2X/DAY
     Route: 048
     Dates: start: 20120126, end: 20120127

REACTIONS (3)
  - PAIN [None]
  - DRUG INEFFECTIVE [None]
  - MYALGIA [None]
